FAERS Safety Report 25249414 (Version 2)
Quarter: 2025Q3

REPORT INFORMATION
  Report Type: Report from Study
  Country: IN (occurrence: IN)
  Receive Date: 20250429
  Receipt Date: 20250806
  Transmission Date: 20251021
  Serious: Yes (Other)
  Sender: TAKEDA
  Company Number: IN-TAKEDA-2025TUS040650

PATIENT
  Sex: Male
  Weight: 50.8 kg

DRUGS (2)
  1. VEDOLIZUMAB [Suspect]
     Active Substance: VEDOLIZUMAB
     Indication: Crohn^s disease
  2. VEDOLIZUMAB [Suspect]
     Active Substance: VEDOLIZUMAB

REACTIONS (6)
  - Haematochezia [Unknown]
  - Mucous stools [Unknown]
  - Increased appetite [Unknown]
  - Weight increased [Unknown]
  - Cough [Unknown]
  - Pyrexia [Unknown]
